FAERS Safety Report 26150159 (Version 1)
Quarter: 2025Q4

REPORT INFORMATION
  Report Type: Spontaneous
  Country: US (occurrence: US)
  Receive Date: 20251212
  Receipt Date: 20251212
  Transmission Date: 20260117
  Serious: No
  Sender: SANOFI AVENTIS
  Company Number: US-SA-2025SA359784

PATIENT
  Age: 49 Year
  Sex: Female

DRUGS (6)
  1. WAYRILZ [Suspect]
     Active Substance: RILZABRUTINIB
     Indication: Thrombocytopenia
     Dosage: 400 MG, BID
     Route: 048
  2. DOCUSATE SODIUM\FERROUS FUMARATE [Concomitant]
     Active Substance: DOCUSATE SODIUM\FERROUS FUMARATE
  3. FOLIC ACID [Concomitant]
     Active Substance: FOLIC ACID
  4. Vitamin k2 + d3 [Concomitant]
  5. LEVOTHYROXINE SODIUM [Concomitant]
     Active Substance: LEVOTHYROXINE SODIUM
  6. PREDNISONE [Concomitant]
     Active Substance: PREDNISONE

REACTIONS (1)
  - Nausea [Recovering/Resolving]
